FAERS Safety Report 25049999 (Version 1)
Quarter: 2025Q1

REPORT INFORMATION
  Report Type: Spontaneous
  Country: US (occurrence: None)
  Receive Date: 20250307
  Receipt Date: 20250307
  Transmission Date: 20250408
  Serious: Yes (Hospitalization)
  Sender: FDA-CTU
  Company Number: None

PATIENT
  Age: 5 Year
  Sex: Male
  Weight: 14.5 kg

DRUGS (4)
  1. CYCLOPHOSPHAMIDE [Suspect]
     Active Substance: CYCLOPHOSPHAMIDE
     Dates: end: 20250113
  2. CYTARABINE [Suspect]
     Active Substance: CYTARABINE
     Dates: end: 20250123
  3. METHOTREXATE [Suspect]
     Active Substance: METHOTREXATE
     Dates: end: 20250113
  4. THIOGUANINE ANHYDROUS [Suspect]
     Active Substance: THIOGUANINE ANHYDROUS
     Dates: end: 20250126

REACTIONS (3)
  - Adenovirus infection [None]
  - COVID-19 [None]
  - Capnocytophaga infection [None]

NARRATIVE: CASE EVENT DATE: 20250130
